FAERS Safety Report 9524324 (Version 1)
Quarter: 2013Q1

REPORT INFORMATION
  Report Type: Spontaneous
  Country: US (occurrence: None)
  Receive Date: 20130305
  Receipt Date: 20130305
  Transmission Date: 20140127
  Serious: Yes (Other)
  Sender: FDA-Public Use
  Company Number: 163-21880-12022083

PATIENT
  Age: 61 Year
  Sex: Male
  Weight: 89.36 kg

DRUGS (1)
  1. REVLIMID (LENALIDOMIDE) (CAPSULES) [Suspect]
     Indication: PLASMA CELL MYELOMA
     Dosage: 3.75 MG, 21 IN 28 D, PO
     Route: 048
     Dates: start: 20100819

REACTIONS (4)
  - Clostridium difficile infection [None]
  - Diarrhoea [None]
  - Herpes zoster [None]
  - Malaise [None]
